FAERS Safety Report 6155436-8 (Version None)
Quarter: 2009Q2

REPORT INFORMATION
  Report Type: 
  Country: None (occurrence: None)
  Receive Date: 20090415
  Receipt Date: 20090410
  Transmission Date: 20091009
  Serious: Yes (Other)
  Sender: FDA-Public Use
  Company Number: HQWYE194416JUL04

PATIENT
  Sex: Female
  Weight: 80.81 kg

DRUGS (1)
  1. PREMPRO [Suspect]
     Indication: HOT FLUSH
     Dosage: UNKNOWN
     Route: 048
     Dates: start: 19980101, end: 19990101

REACTIONS (1)
  - CONTRALATERAL BREAST CANCER [None]
